FAERS Safety Report 25641927 (Version 1)
Quarter: 2025Q3

REPORT INFORMATION
  Report Type: Spontaneous
  Country: US (occurrence: US)
  Receive Date: 20250804
  Receipt Date: 20250804
  Transmission Date: 20251021
  Serious: No
  Sender: SANOFI AVENTIS
  Company Number: US-SA-2025SA226733

PATIENT
  Sex: Female
  Weight: 115.45 kg

DRUGS (1)
  1. DUPIXENT [Suspect]
     Active Substance: DUPILUMAB
     Indication: Asthma
     Dosage: UNK, QOW
     Route: 058

REACTIONS (4)
  - Hordeolum [Unknown]
  - Perineal disorder [Unknown]
  - Insomnia [Unknown]
  - Arthralgia [Unknown]
